FAERS Safety Report 19413290 (Version 1)
Quarter: 2021Q2

REPORT INFORMATION
  Report Type: Spontaneous
  Country: CN (occurrence: CN)
  Receive Date: 20210614
  Receipt Date: 20210614
  Transmission Date: 20210717
  Serious: Yes (Death, Other)
  Sender: FDA-Public Use
  Company Number: CN-BAXTER-2021BAX015032

PATIENT
  Age: 13 Year
  Sex: Female
  Weight: 54 kg

DRUGS (4)
  1. GLUCOSE [Suspect]
     Active Substance: DEXTROSE
     Indication: MEDICATION DILUTION
     Dosage: GLUCOSE + CYCLOPHOSPHAMIDE 2.7 G
     Route: 041
     Dates: start: 20210523, end: 20210523
  2. GLUCOSE [Suspect]
     Active Substance: DEXTROSE
     Dosage: GLUCOSE + CYCLOPHOSPHAMIDE 2.7 G
     Route: 041
     Dates: start: 20210524, end: 20210524
  3. ENDOXAN [Suspect]
     Active Substance: CYCLOPHOSPHAMIDE
     Indication: APLASTIC ANAEMIA
     Dosage: CYCLOPHOSPHAMIDE + 5% GLUCOSE 100 ML
     Route: 041
     Dates: start: 20210523, end: 20210523
  4. ENDOXAN [Suspect]
     Active Substance: CYCLOPHOSPHAMIDE
     Dosage: CYCLOPHOSPHAMIDE + 5% GLUCOSE 100 ML
     Route: 041
     Dates: start: 20210524, end: 20210524

REACTIONS (4)
  - Oropharyngeal pain [Unknown]
  - Syncope [Unknown]
  - Gingival pain [Unknown]
  - Cardiotoxicity [Fatal]

NARRATIVE: CASE EVENT DATE: 20210524
